FAERS Safety Report 17792512 (Version 1)
Quarter: 2020Q2

REPORT INFORMATION
  Report Type: Spontaneous
  Country: US (occurrence: US)
  Receive Date: 20200515
  Receipt Date: 20200515
  Transmission Date: 20200714
  Serious: Yes (Hospitalization, Disabling, Other)
  Sender: FDA-Public Use
  Company Number: US-PFIZER INC-2020075908

PATIENT
  Age: 48 Year
  Sex: Male

DRUGS (2)
  1. PRISTIQ EXTENDED-RELEASE [Suspect]
     Active Substance: DESVENLAFAXINE SUCCINATE
     Indication: ANXIETY
  2. PRISTIQ EXTENDED-RELEASE [Suspect]
     Active Substance: DESVENLAFAXINE SUCCINATE
     Indication: DEPRESSION
     Dosage: 50 MG, 1X/DAY
     Route: 048
     Dates: start: 2003

REACTIONS (10)
  - Drug ineffective [Recovering/Resolving]
  - Obstruction gastric [Unknown]
  - Weight decreased [Unknown]
  - Malaise [Unknown]
  - Vomiting [Unknown]
  - Drug dispensed to wrong patient [Unknown]
  - Paraplegia [Unknown]
  - Gait disturbance [Unknown]
  - Diarrhoea [Unknown]
  - Acute flaccid myelitis [Unknown]

NARRATIVE: CASE EVENT DATE: 201908
